FAERS Safety Report 24079406 (Version 2)
Quarter: 2024Q4

REPORT INFORMATION
  Report Type: Spontaneous
  Country: GB (occurrence: GB)
  Receive Date: 20240711
  Receipt Date: 20241021
  Transmission Date: 20250115
  Serious: Yes (Hospitalization, Other)
  Sender: HIKMA
  Company Number: GB-HIKMA PHARMACEUTICALS-GB-H14001-24-06294

PATIENT
  Age: 78 Year
  Sex: Male
  Weight: 85 kg

DRUGS (31)
  1. CARBOPLATIN [Suspect]
     Active Substance: CARBOPLATIN
     Dosage: 500 MILLIGRAM
     Route: 065
     Dates: start: 20230518
  2. CARBOPLATIN [Suspect]
     Active Substance: CARBOPLATIN
     Indication: Small cell lung cancer extensive stage
     Dosage: 560MG
     Route: 065
     Dates: start: 20230309
  3. ETOPOSIDE [Suspect]
     Active Substance: ETOPOSIDE
     Indication: Small cell lung cancer extensive stage
     Dosage: 180 MILLIGRAM
     Route: 065
     Dates: start: 20230309
  4. ETOPOSIDE [Suspect]
     Active Substance: ETOPOSIDE
     Dosage: 180 MILLIGRAM
     Route: 065
     Dates: start: 20230518
  5. AMOROLFINE [Concomitant]
     Active Substance: AMOROLFINE
     Indication: Chronic obstructive pulmonary disease
     Dosage: UNKNOWN
     Route: 065
     Dates: start: 20240319
  6. AMOROLFINE [Concomitant]
     Active Substance: AMOROLFINE
     Indication: Dyspnoea
  7. AMOROLFINE [Concomitant]
     Active Substance: AMOROLFINE
     Indication: Productive cough
  8. AMOXICILLIN [Concomitant]
     Active Substance: AMOXICILLIN
     Indication: Chronic obstructive pulmonary disease
     Dosage: 500 MILLIGRAM
     Route: 065
     Dates: start: 20240319, end: 20240321
  9. AMOXICILLIN [Concomitant]
     Active Substance: AMOXICILLIN
     Indication: Dyspnoea
  10. AMOXICILLIN [Concomitant]
     Active Substance: AMOXICILLIN
     Indication: Productive cough
  11. ATEZOLIZUMAB [Concomitant]
     Active Substance: ATEZOLIZUMAB
     Indication: Small cell lung cancer extensive stage
     Dosage: 1200 MILLIGRAM, 3W
     Route: 065
     Dates: start: 20230309
  12. ATEZOLIZUMAB [Concomitant]
     Active Substance: ATEZOLIZUMAB
     Dosage: 1200 MILLIGRAM, 3W
     Route: 065
     Dates: start: 20240313
  13. ATORVASTATIN [Concomitant]
     Active Substance: ATORVASTATIN
     Indication: Product used for unknown indication
     Dosage: UNKNOWN
     Route: 065
     Dates: start: 20190125
  14. AVEENO [Concomitant]
     Active Substance: DIMETHICONE\HOMOSALATE\OCTINOXATE\OCTISALATE\TITANIUM DIOXIDE
     Indication: Rash
     Dosage: UNKNOWN
     Route: 065
     Dates: start: 20230801
  15. BECLOMETHASONE DIPROPIONATE [Concomitant]
     Active Substance: BECLOMETHASONE DIPROPIONATE
     Indication: Product used for unknown indication
     Dosage: UNKNOWN
     Route: 065
     Dates: start: 20240115
  16. CHLORHEXIDINE [Concomitant]
     Active Substance: CHLORHEXIDINE
     Indication: Mucosal inflammation
     Dosage: UNKNOWN
     Route: 065
     Dates: start: 20230331
  17. CLARITHROMYCIN [Concomitant]
     Active Substance: CLARITHROMYCIN
     Indication: Lower respiratory tract infection
     Dosage: UNKNOWN
     Route: 065
     Dates: start: 20240229, end: 20240305
  18. DOCUSATE [Concomitant]
     Active Substance: DOCUSATE
     Indication: Constipation
     Dosage: UNKNOWN
     Route: 065
     Dates: start: 20230301
  19. DOXYCYCLINE [Concomitant]
     Active Substance: DOXYCYCLINE
     Indication: Cough
     Dosage: UNKNOWN
     Route: 065
     Dates: start: 20240220
  20. LANSOPRAZOLE [Concomitant]
     Active Substance: LANSOPRAZOLE
     Indication: Dyspepsia
     Dosage: UNKNOWN
     Route: 065
     Dates: start: 20230531
  21. LANSOPRAZOLE [Concomitant]
     Active Substance: LANSOPRAZOLE
     Dosage: UNKNOWN
     Route: 065
     Dates: start: 20240319
  22. POLYETHYLENE GLYCOL 3350\POTASSIUM CHLORIDE\SODIUM BICARBONATE\SODIUM [Concomitant]
     Active Substance: POLYETHYLENE GLYCOL 3350\POTASSIUM CHLORIDE\SODIUM BICARBONATE\SODIUM CHLORIDE
     Indication: Constipation
     Dosage: UNKNOWN
     Route: 065
     Dates: start: 20230518
  23. LORATADINE [Concomitant]
     Active Substance: LORATADINE
     Indication: Seasonal allergy
     Dosage: UNKNOWN
     Route: 065
     Dates: start: 20240319
  24. ACETAMINOPHEN [Concomitant]
     Active Substance: ACETAMINOPHEN
     Indication: Pain in extremity
     Dosage: UNKNOWN
     Route: 065
     Dates: start: 20230426
  25. PREDNISOLONE [Concomitant]
     Active Substance: PREDNISOLONE
     Indication: Lower respiratory tract infection
     Dosage: 300 MILLIGRAM, QD
     Route: 065
     Dates: start: 20240229, end: 20240305
  26. PREDNISOLONE [Concomitant]
     Active Substance: PREDNISOLONE
     Indication: Chronic obstructive pulmonary disease
  27. ALBUTEROL [Concomitant]
     Active Substance: ALBUTEROL
     Indication: Chronic obstructive pulmonary disease
     Dosage: UNKNOWN
     Route: 065
     Dates: start: 20151130
  28. ALBUTEROL [Concomitant]
     Active Substance: ALBUTEROL
     Indication: Chronic obstructive pulmonary disease
     Dosage: UNKNOWN
     Route: 065
     Dates: start: 20240522
  29. SENNA TABS [Concomitant]
     Active Substance: SENNOSIDES A AND B
     Indication: Constipation
     Dosage: UNKNOWN
     Route: 065
     Dates: start: 20230328
  30. STERIMAR [SEA WATER] [Concomitant]
     Indication: Product used for unknown indication
     Dosage: UNKNOWN
     Route: 065
     Dates: start: 20240115
  31. TRELEGY ELLIPTA [Concomitant]
     Active Substance: FLUTICASONE FUROATE\UMECLIDINIUM BROMIDE\VILANTEROL TRIFENATATE
     Indication: Chronic obstructive pulmonary disease
     Dosage: ONE INHALATION
     Route: 065
     Dates: start: 20160511

REACTIONS (1)
  - Chest pain [Recovering/Resolving]

NARRATIVE: CASE EVENT DATE: 20240325
